FAERS Safety Report 4289657-6 (Version None)
Quarter: 2004Q1

REPORT INFORMATION
  Report Type: 
  Country: None (occurrence: None)
  Receive Date: 20040206
  Receipt Date: 20040206
  Transmission Date: 20041129
  Serious: Yes (Hospitalization)
  Sender: FDA-Public Use
  Company Number: None

PATIENT
  Age: 75 Year
  Sex: Female

DRUGS (1)
  1. WARFARIN SODIUM [Suspect]

REACTIONS (5)
  - CONSTIPATION [None]
  - DIARRHOEA [None]
  - OCCULT BLOOD [None]
  - RECTAL HAEMORRHAGE [None]
  - URINE ANALYSIS ABNORMAL [None]
